FAERS Safety Report 6752431-2 (Version None)
Quarter: 2010Q2

REPORT INFORMATION
  Report Type: 
  Country: None (occurrence: None)
  Receive Date: 20100602
  Receipt Date: 20100602
  Transmission Date: 20101027
  Serious: Yes (Other)
  Sender: FDA-Public Use
  Company Number: US-ROXANE LABORATORIES, INC.-2010-RO-00662RO

PATIENT
  Sex: Male

DRUGS (5)
  1. FLUTICASONE PROPIONATE [Suspect]
     Indication: MULTIPLE ALLERGIES
     Route: 055
     Dates: start: 20100426
  2. FLUTICASONE PROPIONATE [Suspect]
     Indication: RHINITIS ALLERGIC
  3. LOVASTATIN [Concomitant]
     Indication: BLOOD CHOLESTEROL INCREASED
  4. ALLERGY SHOTS [Concomitant]
     Indication: MULTIPLE ALLERGIES
  5. LORATADINE [Concomitant]

REACTIONS (1)
  - ANOSMIA [None]
